FAERS Safety Report 25152916 (Version 3)
Quarter: 2025Q2

REPORT INFORMATION
  Report Type: Spontaneous
  Country: US (occurrence: US)
  Receive Date: 20250403
  Receipt Date: 20250516
  Transmission Date: 20250717
  Serious: Yes (Death, Hospitalization, Other)
  Sender: NOVO NORDISK
  Company Number: US-NOVOPROD-1398628

PATIENT
  Age: 86 Year
  Sex: Male

DRUGS (1)
  1. VICTOZA [Suspect]
     Active Substance: LIRAGLUTIDE
     Indication: Diabetes mellitus
     Dates: start: 2018, end: 20231003

REACTIONS (2)
  - Cerebrovascular accident [Fatal]
  - Illness [Unknown]

NARRATIVE: CASE EVENT DATE: 20211003
